FAERS Safety Report 9885540 (Version 2)
Quarter: 2014Q1

REPORT INFORMATION
  Report Type: Spontaneous
  Country: FR (occurrence: FR)
  Receive Date: 20140210
  Receipt Date: 20140220
  Transmission Date: 20141002
  Serious: Yes (Hospitalization, Other)
  Sender: FDA-Public Use
  Company Number: FR-PFIZER INC-2014032686

PATIENT
  Age: 57 Year
  Sex: Male

DRUGS (24)
  1. TAZOCILLINE [Suspect]
     Dosage: 4 G, 4X/DAY
     Route: 042
     Dates: start: 20131230, end: 20140103
  2. VANCOMYCIN [Suspect]
     Dosage: 2.5 G, 1X/DAY
     Route: 042
     Dates: start: 20131224, end: 20140102
  3. CEFEPIME [Suspect]
     Dosage: 2 G, 3X/DAY
     Route: 042
     Dates: start: 20131224, end: 20131229
  4. HEPARIN SODIUM [Suspect]
     Dosage: 7000 IU, 1X/DAY
     Route: 058
     Dates: start: 20131224, end: 20140108
  5. AMIKACIN [Suspect]
     Dosage: 1750 MG, 1X/DAY
     Route: 065
     Dates: start: 20131226, end: 20131230
  6. CUBICIN [Suspect]
     Dosage: 420 MG, 1X/DAY
     Route: 042
     Dates: start: 20140103, end: 20140107
  7. ZELITREX [Suspect]
     Indication: PANCYTOPENIA
     Dosage: 1000 MG, 3X/DAY
     Route: 048
     Dates: start: 20131203, end: 20140112
  8. ZELITREX [Suspect]
     Indication: ENTEROBACTER TEST POSITIVE
  9. NOXAFIL [Suspect]
     Indication: ENTEROBACTER TEST POSITIVE
     Dosage: 300 MG, 3X/DAY
     Route: 048
     Dates: start: 20131205, end: 20140109
  10. NOXAFIL [Suspect]
     Indication: PANCYTOPENIA
  11. INEXIUM [Suspect]
     Dosage: 20 MG, 1X/DAY
     Route: 048
     Dates: start: 20131205, end: 20140111
  12. CICLOSPORIN [Suspect]
     Indication: CHEMOTHERAPY
     Dosage: 220 MG, 1X/DAY
     Route: 042
     Dates: start: 20131214, end: 20140105
  13. FLAGYL [Concomitant]
     Indication: DIVERTICULITIS
     Dosage: UNK
     Dates: start: 20140103
  14. FLAGYL [Concomitant]
     Indication: COLITIS
  15. OROKEN [Concomitant]
     Indication: DIVERTICULITIS
  16. OROKEN [Concomitant]
     Indication: COLITIS
  17. SOLU-MEDROL [Concomitant]
     Dosage: 70 MG, DAILY
     Dates: start: 20131214
  18. SOLU-MEDROL [Concomitant]
     Dosage: 10 MG, DAILY
     Dates: end: 20140102
  19. MOTILIUM [Concomitant]
     Dosage: UNK
     Dates: start: 20131218, end: 20131224
  20. ATGAM [Concomitant]
     Dosage: UNK
     Dates: start: 20131214, end: 20131217
  21. TIENAM [Concomitant]
     Indication: ENTEROBACTER TEST POSITIVE
     Dosage: UNK
     Dates: start: 20131206, end: 20131220
  22. TIENAM [Concomitant]
     Indication: PANCYTOPENIA
  23. OFLOCET [Concomitant]
     Indication: ENTEROBACTER TEST POSITIVE
     Dosage: UNK
     Dates: start: 201312, end: 20131220
  24. OFLOCET [Concomitant]
     Indication: PANCYTOPENIA

REACTIONS (3)
  - Skin mass [Unknown]
  - Myalgia [Unknown]
  - Generalised oedema [Unknown]
